FAERS Safety Report 9232089 (Version 2)
Quarter: 2013Q3

REPORT INFORMATION
  Report Type: Spontaneous
  Country: US (occurrence: US)
  Receive Date: 20130415
  Receipt Date: 20130710
  Transmission Date: 20140515
  Serious: No
  Sender: FDA-Public Use
  Company Number: US-PFIZER INC-2013115881

PATIENT
  Age: 72 Year
  Sex: Male

DRUGS (16)
  1. SUTENT [Suspect]
     Indication: RENAL CANCER
     Dosage: STRENGTH OF DOSAGE FORM: 25MG
     Dates: start: 20130322
  2. LEVEMIR FLEXPEN [Concomitant]
     Dosage: UNK
  3. ASPIRIN LOW DOSE [Concomitant]
     Dosage: UNK
  4. DULERA [Concomitant]
     Dosage: UNK
  5. EFFIENT [Concomitant]
     Dosage: UNK
  6. FLOMAX [Concomitant]
     Dosage: UNK
  7. LIPITOR [Concomitant]
     Dosage: UNK
  8. LISINOPRIL [Concomitant]
     Dosage: UNK
  9. ONGLYZA [Concomitant]
     Dosage: UNK
  10. ALIGN [Concomitant]
     Dosage: UNK
  11. BUSPIRONE HYDROCHLORIDE [Concomitant]
     Dosage: UNK
  12. PAROXETINE HCL [Concomitant]
     Dosage: UNK
  13. PERCOCET [Concomitant]
     Dosage: UNK
  14. PROCHLORPERAZINE MALEATE [Concomitant]
     Dosage: UNK
  15. PRO-AIR [Concomitant]
     Dosage: UNK
  16. PRILOSEC [Concomitant]
     Dosage: UNK

REACTIONS (2)
  - Nausea [Unknown]
  - Incorrect dose administered [Unknown]
